FAERS Safety Report 21238263 (Version 1)
Quarter: 2022Q3

REPORT INFORMATION
  Report Type: Spontaneous
  Country: SI (occurrence: SI)
  Receive Date: 20220822
  Receipt Date: 20220822
  Transmission Date: 20221027
  Serious: Yes (Hospitalization, Other)
  Sender: FDA-Public Use
  Company Number: None

PATIENT
  Age: 69 Year
  Sex: Male

DRUGS (14)
  1. OFEV [Suspect]
     Active Substance: NINTEDANIB
     Indication: Idiopathic pulmonary fibrosis
     Route: 048
     Dates: start: 20211221, end: 202207
  2. RANEXA [Concomitant]
     Active Substance: RANOLAZINE
     Indication: Product used for unknown indication
  3. Omnic Ocas 0,4 MG [Concomitant]
     Indication: Product used for unknown indication
  4. PLAVIX [Concomitant]
     Active Substance: CLOPIDOGREL BISULFATE
     Indication: Product used for unknown indication
     Dates: start: 20220728
  5. Helex 0,25 MG [Concomitant]
     Indication: Product used for unknown indication
  6. PREDUCTAL MR 35 MG [Concomitant]
     Indication: Product used for unknown indication
  7. Seldiar 2 MG [Concomitant]
     Indication: Product used for unknown indication
  8. ENTRESTO [Concomitant]
     Active Substance: SACUBITRIL\VALSARTAN
     Indication: Product used for unknown indication
  9. Coupet 40 MG [Concomitant]
     Indication: Product used for unknown indication
  10. Edemid 40 MG [Concomitant]
     Indication: Product used for unknown indication
  11. CONCOR COR 2,5 MG [Concomitant]
     Indication: Product used for unknown indication
  12. Nolpaza 20 MG [Concomitant]
     Indication: Product used for unknown indication
  13. Lopacut 2 MG [Concomitant]
     Indication: Product used for unknown indication
  14. ASPIRIN [Concomitant]
     Active Substance: ASPIRIN
     Indication: Product used for unknown indication

REACTIONS (1)
  - Ischaemic stroke [Unknown]

NARRATIVE: CASE EVENT DATE: 20220701
